FAERS Safety Report 8392837-1 (Version None)
Quarter: 2012Q2

REPORT INFORMATION
  Report Type: 
  Country: None (occurrence: None)
  Receive Date: 20120529
  Receipt Date: 20120522
  Transmission Date: 20120825
  Serious: Yes (Other)
  Sender: FDA-Public Use
  Company Number: BR-PFIZER INC-2012124795

PATIENT
  Age: 88 Year
  Sex: Female
  Weight: 65 kg

DRUGS (3)
  1. AMIODARONE HYDROCHLORIDE [Concomitant]
  2. XALATAN [Suspect]
     Indication: INTRAOCULAR PRESSURE INCREASED
     Dosage: 1 GTT, 2X/DAY, EACH EYE
     Route: 047
     Dates: start: 20070101
  3. SIMVASTATIN [Concomitant]
     Indication: BLOOD CHOLESTEROL INCREASED

REACTIONS (2)
  - CARDIAC DISORDER [None]
  - BLINDNESS UNILATERAL [None]
